FAERS Safety Report 25194727 (Version 4)
Quarter: 2025Q2

REPORT INFORMATION
  Report Type: Spontaneous
  Country: GB (occurrence: GB)
  Receive Date: 20250414
  Receipt Date: 20250627
  Transmission Date: 20250716
  Serious: Yes (Other)
  Sender: JOHNSON AND JOHNSON
  Company Number: GB-BRISTOL-MYERS SQUIBB COMPANY-2025-048896

PATIENT
  Age: 79 Year
  Sex: Male

DRUGS (29)
  1. VELCADE [Suspect]
     Active Substance: BORTEZOMIB
     Indication: Plasma cell myeloma
     Dates: start: 2015
  2. TECVAYLI [Suspect]
     Active Substance: TECLISTAMAB-CQYV
     Indication: Plasma cell myeloma
     Dates: start: 201501
  3. LENALIDOMIDE [Suspect]
     Active Substance: LENALIDOMIDE
     Indication: Plasma cell myeloma
     Dates: start: 2015, end: 202012
  4. CYCLOPHOSPHAMIDE [Suspect]
     Active Substance: CYCLOPHOSPHAMIDE
     Indication: Plasma cell myeloma
     Dates: start: 2015
  5. DEXAMETHASONE [Suspect]
     Active Substance: DEXAMETHASONE
     Indication: Plasma cell myeloma
     Dates: start: 2015
  6. DEXAMETHASONE [Suspect]
     Active Substance: DEXAMETHASONE
     Dates: start: 2024
  7. ISATUXIMAB [Suspect]
     Active Substance: ISATUXIMAB
     Indication: Plasma cell myeloma
     Dates: start: 2024
  8. POMALIDOMIDE [Suspect]
     Active Substance: POMALIDOMIDE
     Indication: Plasma cell myeloma
     Dates: start: 2024
  9. THALIDOMIDE [Suspect]
     Active Substance: THALIDOMIDE
     Indication: Plasma cell myeloma
     Dates: start: 201409, end: 201409
  10. THALIDOMIDE [Suspect]
     Active Substance: THALIDOMIDE
     Dates: end: 201409
  11. Epoietin beta [Concomitant]
     Indication: Product used for unknown indication
     Dosage: 3000 INTERNATIONAL UNIT, EVERY WEEK
  12. Epoietin beta [Concomitant]
     Dosage: 30,000 UNITS WEEKLY
  13. ACYCLOVIR [Concomitant]
     Active Substance: ACYCLOVIR
     Indication: Product used for unknown indication
     Dosage: 800 MILLIGRAM, ONCE A DAY (400 MILLIGRAM, BID)
  14. ACYCLOVIR [Concomitant]
     Active Substance: ACYCLOVIR
     Dosage: 400 MG, QD
  15. APIXABAN [Concomitant]
     Active Substance: APIXABAN
     Indication: Product used for unknown indication
     Dosage: 5 MG, QD
  16. APIXABAN [Concomitant]
     Active Substance: APIXABAN
     Dosage: 10 MG, QD
  17. ATOVAQUONE [Concomitant]
     Active Substance: ATOVAQUONE
     Indication: Product used for unknown indication
     Dosage: 750 MG, QD (0.5 DAY)
  18. ATOVAQUONE [Concomitant]
     Active Substance: ATOVAQUONE
     Dosage: 1500 MG, QD
  19. BISOPROLOL [Concomitant]
     Active Substance: BISOPROLOL
     Indication: Product used for unknown indication
  20. FINASTERIDE [Concomitant]
     Active Substance: FINASTERIDE
     Indication: Product used for unknown indication
  21. tamsulosin MR [Concomitant]
     Indication: Product used for unknown indication
  22. BISACODYL [Concomitant]
     Active Substance: BISACODYL
     Indication: Product used for unknown indication
     Dosage: 5 MILLIGRAM, ONCE A DAY (5 MILLIGRAM, PM (BISACODYL 5MG AT NIGHT))
  23. BISACODYL [Concomitant]
     Active Substance: BISACODYL
  24. ZOPICLONE [Concomitant]
     Active Substance: ZOPICLONE
     Indication: Product used for unknown indication
  25. ZOPICLONE [Concomitant]
     Active Substance: ZOPICLONE
     Dosage: ZOPLICLONE 3.75 MG NOCTE
  26. DOCUSATE [Concomitant]
     Active Substance: DOCUSATE
     Indication: Product used for unknown indication
     Dosage: 200 MILLIGRAM, ONCE A DAY (0.5 DAY)
  27. DOCUSATE [Concomitant]
     Active Substance: DOCUSATE
     Dosage: 400 MILLIGRAM, ONCE A DAY (200 MILLIGRAM, BID)
  28. DOCUSATE [Concomitant]
     Active Substance: DOCUSATE
     Dosage: 200 MG, QD
  29. DOCUSATE [Concomitant]
     Active Substance: DOCUSATE
     Dosage: 400 MG, QD

REACTIONS (4)
  - IgA nephropathy [Unknown]
  - IVth nerve paralysis [Unknown]
  - Drug ineffective [Unknown]
  - COVID-19 [Unknown]

NARRATIVE: CASE EVENT DATE: 20201201
